FAERS Safety Report 6616087-1 (Version None)
Quarter: 2010Q1

REPORT INFORMATION
  Report Type: 
  Country: None (occurrence: None)
  Receive Date: 20100305
  Receipt Date: 20100222
  Transmission Date: 20100710
  Serious: Yes (Other)
  Sender: FDA-Public Use
  Company Number: PHEH2008US02622

PATIENT
  Sex: Female
  Weight: 63.492 kg

DRUGS (42)
  1. AREDIA [Suspect]
     Dosage: UNK
     Dates: start: 19990801
  2. ZOMETA [Suspect]
     Dosage: UNK
     Dates: start: 20030801, end: 20041101
  3. THALIDOMIDE [Concomitant]
     Dosage: UNK
     Dates: start: 20010101, end: 20030201
  4. COUMADIN [Concomitant]
  5. ACYCLOVIR [Concomitant]
     Dosage: 800 MG, BID
  6. OXYCONTIN [Concomitant]
     Dosage: 40 MG, BID
  7. FLEXERIL [Concomitant]
     Dosage: 10 MG, UNK
  8. PERCOCET [Concomitant]
     Dosage: UNK
  9. OXYCODONE HCL [Concomitant]
  10. AMOXICILLIN [Concomitant]
     Dosage: 500 MG, TID
  11. HYDROMORPHONE HYDROCHLORIDE [Concomitant]
     Dosage: 4 MG, PRN
  12. VELCADE [Concomitant]
     Dosage: UNK
     Dates: start: 20070801, end: 20071001
  13. RADIATION [Concomitant]
  14. MELPHALAN [Concomitant]
  15. FLUCONAZOLE [Concomitant]
     Dosage: 200 MG, DAILY
  16. POTASSIUM [Concomitant]
     Dosage: 20MEQ QD
     Route: 048
  17. LUNESTA [Concomitant]
     Dosage: 2MG QD
     Route: 048
  18. LYRICA [Concomitant]
     Dosage: 150MG
     Route: 048
  19. LEVAQUIN [Concomitant]
     Dosage: 500MG
     Route: 048
  20. GABAPENTIN [Concomitant]
     Dosage: 300MG
     Route: 048
  21. CHLORHEXIDINE DENTAL ^ACO^ [Concomitant]
     Dosage: ORAL RINSE
     Route: 048
  22. LOVASTATIN [Concomitant]
     Dosage: 40MG
     Route: 048
  23. PROCHLORPERAZINE [Concomitant]
     Dosage: 10MG
     Route: 048
  24. LIDODERM [Concomitant]
     Dosage: 5% PATCH
     Route: 062
  25. DEXAMETHAZONE-PIX [Concomitant]
     Dosage: 4MG
     Route: 048
  26. AZITHROMYC [Concomitant]
     Dosage: 250MG
     Route: 048
  27. NEXIUM [Concomitant]
     Dosage: 40MG
     Route: 048
  28. PENICILLIN VK [Concomitant]
     Dosage: 500MGUNK
     Route: 048
  29. NEURONTIN [Concomitant]
     Dosage: 300MG
     Route: 048
  30. NEURONTIN [Concomitant]
     Dosage: 800MG
     Route: 048
  31. CEPHALEXIN [Concomitant]
     Dosage: 500MG
     Route: 048
  32. LISINOPRIL [Concomitant]
     Dosage: 5MG
     Route: 048
  33. AMBIEN [Concomitant]
     Dosage: 5MG
     Route: 048
  34. VIOXX [Concomitant]
     Dosage: 25MG
     Route: 048
  35. METHOCARBAMOL [Concomitant]
     Dosage: 500MG
     Route: 048
  36. CELEBREX [Concomitant]
     Dosage: 200MG
     Route: 048
  37. AMITRIPTYLINE HCL [Concomitant]
     Dosage: 50MG
     Route: 048
  38. THALOMID [Concomitant]
     Dosage: 50MG
     Route: 048
  39. FAMVIR                                  /NET/ [Concomitant]
     Dosage: 500MG
     Route: 048
  40. INTERFERON [Concomitant]
     Dosage: UNK
     Dates: start: 19990801
  41. FLUDARABINE [Concomitant]
     Dosage: UNK
  42. ZANTAC [Concomitant]

REACTIONS (46)
  - ABSCESS DRAINAGE [None]
  - ANXIETY [None]
  - AORTIC ARTERIOSCLEROSIS [None]
  - ASTHENIA [None]
  - BLADDER SPASM [None]
  - BONE DEBRIDEMENT [None]
  - BONE LESION [None]
  - BONE PAIN [None]
  - CONSTIPATION [None]
  - DECREASED APPETITE [None]
  - DEFORMITY [None]
  - EMOTIONAL DISTRESS [None]
  - EYE PAIN [None]
  - FOOT FRACTURE [None]
  - HIP ARTHROPLASTY [None]
  - HIP FRACTURE [None]
  - HYPOAESTHESIA [None]
  - INFECTION [None]
  - INTERVERTEBRAL DISC DISORDER [None]
  - JOINT EFFUSION [None]
  - LERICHE SYNDROME [None]
  - MALIGNANT NEOPLASM PROGRESSION [None]
  - MONOCYTOSIS [None]
  - NERVOUSNESS [None]
  - NEUROPATHY PERIPHERAL [None]
  - OSTEOMYELITIS CHRONIC [None]
  - OSTEONECROSIS [None]
  - OSTEOPENIA [None]
  - OSTEOPOROSIS [None]
  - PAIN [None]
  - PAIN IN EXTREMITY [None]
  - PARAESTHESIA [None]
  - PERIPHERAL VASCULAR DISORDER [None]
  - PHLEBITIS [None]
  - PLASMACYTOMA [None]
  - PYELONEPHRITIS [None]
  - SKULL MALFORMATION [None]
  - SPINAL FRACTURE [None]
  - STEM CELL TRANSPLANT [None]
  - SURGERY [None]
  - THIRST [None]
  - TOOTH EXTRACTION [None]
  - TOOTH LOSS [None]
  - VASCULAR OPERATION [None]
  - WOUND DEHISCENCE [None]
  - WOUND TREATMENT [None]
